FAERS Safety Report 4823777-X (Version None)
Quarter: 2005Q4

REPORT INFORMATION
  Report Type: 
  Country: None (occurrence: None)
  Receive Date: 20051109
  Receipt Date: 20051101
  Transmission Date: 20060501
  Serious: Yes (Hospitalization)
  Sender: FDA-Public Use
  Company Number: DE-ABBOTT-05P-062-0316158-00

PATIENT
  Age: 71 Year
  Sex: Female

DRUGS (1)
  1. HUMIRA [Suspect]
     Indication: RHEUMATOID ARTHRITIS
     Route: 058
     Dates: start: 20040826, end: 20041101

REACTIONS (4)
  - DIVERTICULITIS [None]
  - FEMALE GENITAL TRACT FISTULA [None]
  - IMPAIRED HEALING [None]
  - WOUND ABSCESS [None]
